FAERS Safety Report 8992482 (Version 3)
Quarter: 2013Q1

REPORT INFORMATION
  Report Type: Spontaneous
  Country: CA (occurrence: CA)
  Receive Date: 20121231
  Receipt Date: 20130306
  Transmission Date: 20140127
  Serious: Yes (Other)
  Sender: FDA-Public Use
  Company Number: PHHY2012CA120903

PATIENT
  Age: 51 Year
  Sex: Male

DRUGS (2)
  1. SANDOSTATIN LAR [Suspect]
     Indication: CARCINOID TUMOUR OF THE GASTROINTESTINAL TRACT
     Dosage: 20 MG, EVERY 4 WEEKS
     Route: 030
     Dates: start: 20121114, end: 20121114
  2. 5-FU [Concomitant]
     Dosage: UKN, UNK

REACTIONS (5)
  - Diabetic complication [Recovering/Resolving]
  - Polyuria [Unknown]
  - Dry mouth [Unknown]
  - Palmar-plantar erythrodysaesthesia syndrome [Unknown]
  - Blood glucose increased [Unknown]
